FAERS Safety Report 8189820-8 (Version None)
Quarter: 2012Q1

REPORT INFORMATION
  Report Type: 
  Country: None (occurrence: None)
  Receive Date: 20120307
  Receipt Date: 20110809
  Transmission Date: 20120608
  Serious: No
  Sender: FDA-Public Use
  Company Number: US-GLAXOSMITHKLINE-A0940232A

PATIENT
  Age: 52 Year
  Sex: Female

DRUGS (9)
  1. VITAMIN D [Concomitant]
  2. ROPINIROLE [Suspect]
     Indication: RESTLESS LEGS SYNDROME
     Dosage: 1.5MG AT NIGHT
     Route: 048
     Dates: start: 20100101
  3. ZESTRIL [Concomitant]
  4. CALCIUM [Concomitant]
  5. REQUIP [Suspect]
     Indication: RESTLESS LEGS SYNDROME
     Dosage: 2MG AT NIGHT
     Route: 048
     Dates: start: 20080101
  6. CELEBREX [Concomitant]
  7. HUMIRA [Concomitant]
  8. NEXIUM [Concomitant]
  9. MULTI-VITAMIN [Concomitant]

REACTIONS (6)
  - INSOMNIA [None]
  - PRODUCT QUALITY ISSUE [None]
  - DYSKINESIA [None]
  - DRUG INEFFECTIVE [None]
  - NAUSEA [None]
  - ANXIETY [None]
